FAERS Safety Report 23938026 (Version 1)
Quarter: 2024Q2

REPORT INFORMATION
  Report Type: Spontaneous
  Country: FR (occurrence: FR)
  Receive Date: 20240604
  Receipt Date: 20240604
  Transmission Date: 20240715
  Serious: Yes (Hospitalization)
  Sender: FDA-Public Use
  Company Number: None

PATIENT
  Age: 87 Year
  Sex: Male

DRUGS (6)
  1. CIPROFLOXACIN [Suspect]
     Active Substance: CIPROFLOXACIN
     Indication: Urinary tract infection
     Dosage: 1000 MG, Q1HR
     Route: 048
     Dates: start: 20231220, end: 20240104
  2. IRBESARTAN [Concomitant]
     Active Substance: IRBESARTAN
     Dosage: 1 CP/J
     Route: 048
     Dates: end: 20240111
  3. BISOPROLOL FUMARATE [Concomitant]
     Active Substance: BISOPROLOL FUMARATE
  4. ALLOPURINOL [Concomitant]
     Active Substance: ALLOPURINOL
  5. FORADIL [Concomitant]
     Active Substance: FORMOTEROL FUMARATE
  6. ASPIRIN [Concomitant]
     Active Substance: ASPIRIN

REACTIONS (3)
  - Acute kidney injury [Recovered/Resolved]
  - Muscle spasms [Not Recovered/Not Resolved]
  - Condition aggravated [Recovered/Resolved]

NARRATIVE: CASE EVENT DATE: 20231230
